FAERS Safety Report 7239494-5 (Version None)
Quarter: 2011Q1

REPORT INFORMATION
  Report Type: 
  Country: None (occurrence: None)
  Receive Date: 20110121
  Receipt Date: 20110106
  Transmission Date: 20110831
  Serious: Yes (Other)
  Sender: FDA-Public Use
  Company Number: JP-GILEAD-2011-0035377

PATIENT
  Age: 48 Year
  Sex: Male

DRUGS (2)
  1. LAMIVUDINE [Concomitant]
     Indication: HEPATITIS B
     Dates: start: 20020301
  2. HEPSERA [Suspect]
     Indication: HEPATITIS B
     Dates: start: 20020301

REACTIONS (5)
  - IMMUNOSUPPRESSANT DRUG LEVEL INCREASED [None]
  - BONE PAIN [None]
  - HYPOPHOSPHATAEMIA [None]
  - OSTEOMALACIA [None]
  - RENAL TUBULAR DISORDER [None]
